FAERS Safety Report 17371398 (Version 2)
Quarter: 2020Q2

REPORT INFORMATION
  Report Type: Spontaneous
  Country: US (occurrence: US)
  Receive Date: 20200205
  Receipt Date: 20200528
  Transmission Date: 20200713
  Serious: No
  Sender: FDA-Public Use
  Company Number: US-ASTRAZENECA-2020SE14254

PATIENT
  Age: 9 Month
  Sex: Male
  Weight: 8 kg

DRUGS (3)
  1. SYNAGIS [Suspect]
     Active Substance: PALIVIZUMAB
     Indication: RESPIRATORY SYNCYTIAL VIRUS INFECTION
     Route: 030
     Dates: start: 20191112, end: 20200310
  2. SYNAGIS [Suspect]
     Active Substance: PALIVIZUMAB
     Indication: LOW BIRTH WEIGHT BABY
     Route: 030
     Dates: start: 20191112, end: 20200310
  3. POLY-VI-SOL WITH IRON [Concomitant]
     Active Substance: IRON\VITAMINS

REACTIONS (1)
  - Weight decreased [Recovering/Resolving]
